FAERS Safety Report 18936880 (Version 4)
Quarter: 2022Q1

REPORT INFORMATION
  Report Type: Spontaneous
  Country: CA (occurrence: CA)
  Receive Date: 20210224
  Receipt Date: 20220126
  Transmission Date: 20220423
  Serious: Yes (Other)
  Sender: FDA-Public Use
  Company Number: CA-ANIPHARMA-2021-CA-000252

PATIENT
  Age: 87 Year
  Sex: Female

DRUGS (7)
  1. CANDESARTAN CILEXETIL [Suspect]
     Active Substance: CANDESARTAN CILEXETIL
     Indication: Product used for unknown indication
     Dosage: UNKNOWN DOSE AND FREQUENCY
     Route: 048
  2. METOPROLOL [Suspect]
     Active Substance: METOPROLOL
     Dosage: UNKNOWN DOSE AND FREQUENCY
     Route: 048
  3. DEXILANT [Suspect]
     Active Substance: DEXLANSOPRAZOLE
     Dosage: UNKNOWN DOSE AND FREQUENCY
     Route: 065
  4. AMLODIPINE [Suspect]
     Active Substance: AMLODIPINE BESYLATE
     Dosage: UNKNOWN DOSE AND FREQUENCY
     Route: 048
  5. SYNTHROID [Suspect]
     Active Substance: LEVOTHYROXINE SODIUM
     Dosage: UNKNOWN DOSE AND FREQUENCY
     Route: 065
  6. OXAZEPAM [Suspect]
     Active Substance: OXAZEPAM
     Dosage: UNKNOWN DOSE AND FREQUENCY
     Route: 065
  7. FUROSEMIDE [Suspect]
     Active Substance: FUROSEMIDE
     Dosage: UNKNOWN DOSE AND FREQUENCY / 20 MG UNK
     Route: 065

REACTIONS (9)
  - Discomfort [Recovered/Resolved]
  - Dyspnoea [Recovered/Resolved]
  - Friedreich^s ataxia [Recovered/Resolved]
  - Hypervolaemia [Recovered/Resolved]
  - Hypokalaemia [Recovered/Resolved]
  - Myocardial infarction [Recovered/Resolved]
  - Nodule [Recovered/Resolved]
  - Osteoarthritis [Recovered/Resolved]
  - Scoliosis [Recovered/Resolved]
